FAERS Safety Report 4271227-7 (Version None)
Quarter: 2004Q1

REPORT INFORMATION
  Report Type: 
  Country: None (occurrence: None)
  Receive Date: 20040113
  Receipt Date: 20020305
  Transmission Date: 20041129
  Serious: Yes (Death)
  Sender: FDA-Public Use
  Company Number: E131039

PATIENT
  Age: 75 Year
  Sex: Male

DRUGS (3)
  1. (OXALIPLATIN) [Suspect]
     Indication: COLORECTAL CANCER METASTATIC
     Dosage: 85 MG/M2 Q2W
     Route: 042
     Dates: start: 20020220, end: 20020220
  2. FLUOROURACIL [Suspect]
     Dosage: (400 MG/M2 AS BOLUS THEN 600 MG/M2 AS 22-HOUR CONTINUOUS INFUSION) ON D1, D2,; Q2W OR 2400 MG/M2 AS
     Route: 042
     Dates: start: 20020220, end: 20020220
  3. LEUCOVORIN CALCIUM [Suspect]
     Dosage: 200 MG/M2 AS 2-HOUR INFUSION ON D1, D2, Q2W OR 400 MG/M2 AS 2-HOUR INFUSION ON D1; Q2W
     Route: 042
     Dates: start: 20020220, end: 20020220

REACTIONS (2)
  - NEUTROPENIA [None]
  - SEPSIS [None]
